FAERS Safety Report 4912201-4 (Version None)
Quarter: 2006Q1

REPORT INFORMATION
  Report Type: 
  Country: None (occurrence: None)
  Receive Date: 20060215
  Receipt Date: 20050928
  Transmission Date: 20060701
  Serious: No
  Sender: FDA-Public Use
  Company Number: US-GLAXOSMITHKLINE-A0576235A

PATIENT
  Sex: Female

DRUGS (5)
  1. VALTREX [Suspect]
     Indication: PROPHYLAXIS
     Dosage: 1G PER DAY
     Route: 048
     Dates: start: 20050920, end: 20050926
  2. NAPROXEN [Concomitant]
  3. HERBAL SUPPLEMENTS [Concomitant]
  4. VITAMIN [Concomitant]
  5. MINERAL TAB [Concomitant]
     Indication: NUTRITIONAL SUPPORT

REACTIONS (2)
  - GLOSSODYNIA [None]
  - RASH [None]
